FAERS Safety Report 19254960 (Version 1)
Quarter: 2021Q2

REPORT INFORMATION
  Report Type: Spontaneous
  Country: US (occurrence: US)
  Receive Date: 20210513
  Receipt Date: 20210513
  Transmission Date: 20210717
  Serious: Yes (Hospitalization, Other)
  Sender: FDA-Public Use
  Company Number: US-PFIZER INC-2021494316

PATIENT
  Age: 66 Year
  Sex: Male

DRUGS (5)
  1. LYRICA [Suspect]
     Active Substance: PREGABALIN
     Dosage: 300 MG QD
     Dates: start: 20200811
  2. BLINCYTO [Suspect]
     Active Substance: BLINATUMOMAB
     Dosage: 35 MICROGRAM, QD, IV DRIP
     Route: 042
     Dates: start: 20200924
  3. BLINCYTO [Suspect]
     Active Substance: BLINATUMOMAB
     Dosage: UNK
     Dates: start: 20200811, end: 202008
  4. BLINCYTO [Suspect]
     Active Substance: BLINATUMOMAB
     Dosage: 28 MICROGRAM, QD
     Route: 041
     Dates: start: 20210201
  5. BLINCYTO [Suspect]
     Active Substance: BLINATUMOMAB
     Dosage: 28 MICROGRAM, QD (DOSE INCREASED)
     Route: 041
     Dates: start: 20200818, end: 20200907

REACTIONS (3)
  - Neutropenia [Recovered/Resolved]
  - Blood creatinine increased [Recovered/Resolved]
  - Pyrexia [Recovered/Resolved]

NARRATIVE: CASE EVENT DATE: 20200818
